FAERS Safety Report 8129884-0 (Version None)
Quarter: 2012Q1

REPORT INFORMATION
  Report Type: 
  Country: None (occurrence: None)
  Receive Date: 20120210
  Receipt Date: 20120118
  Transmission Date: 20120608
  Serious: No
  Sender: FDA-Public Use
  Company Number: US-COVIDIEN/TYCO HEALTHCARE/MALLINCKRODT-T201200485

PATIENT
  Sex: Female

DRUGS (1)
  1. PENNSAID [Suspect]

REACTIONS (2)
  - DYSGEUSIA [None]
  - ACCIDENTAL EXPOSURE [None]
